FAERS Safety Report 6431873-9 (Version None)
Quarter: 2009Q4

REPORT INFORMATION
  Report Type: 
  Country: None (occurrence: None)
  Receive Date: 20091109
  Receipt Date: 20091029
  Transmission Date: 20100525
  Serious: Yes (Hospitalization)
  Sender: FDA-Public Use
  Company Number: GB-RANBAXY-2009RR-28991

PATIENT
  Age: 37 Year
  Sex: Female

DRUGS (6)
  1. AMOXICILLIN [Suspect]
     Indication: TOOTH INFECTION
     Route: 065
  2. PIPERACILLIN/TAZOBACTAM [Suspect]
     Indication: INFECTION
  3. METRONIDAZOLE [Concomitant]
     Indication: INFECTION
  4. GENTAMICIN [Concomitant]
     Indication: INFECTION
  5. CIPROFLOXACIN [Concomitant]
  6. CLINDAMYCIN [Concomitant]

REACTIONS (24)
  - ABDOMINAL PAIN UPPER [None]
  - ACUTE RESPIRATORY DISTRESS SYNDROME [None]
  - ALANINE AMINOTRANSFERASE INCREASED [None]
  - BACK PAIN [None]
  - BLOOD BILIRUBIN INCREASED [None]
  - COLD SWEAT [None]
  - CYANOSIS [None]
  - DRUG RASH WITH EOSINOPHILIA AND SYSTEMIC SYMPTOMS [None]
  - EOSINOPHIL COUNT DECREASED [None]
  - EOSINOPHILIA [None]
  - FEELING HOT [None]
  - HEADACHE [None]
  - HEPATIC FAILURE [None]
  - HYPERHIDROSIS [None]
  - HYPOTENSION [None]
  - NEUTROPENIA [None]
  - PNEUMONITIS [None]
  - PYREXIA [None]
  - RASH MACULO-PAPULAR [None]
  - RENAL FAILURE [None]
  - TACHYCARDIA [None]
  - TACHYPNOEA [None]
  - VOMITING [None]
  - WHITE BLOOD CELL COUNT DECREASED [None]
